FAERS Safety Report 7036500-8 (Version None)
Quarter: 2010Q4

REPORT INFORMATION
  Report Type: 
  Country: None (occurrence: None)
  Receive Date: 20101011
  Receipt Date: 20100928
  Transmission Date: 20110411
  Serious: No
  Sender: FDA-Public Use
  Company Number: US-BIOGENIDEC-2010BI008266

PATIENT
  Age: 53 Year
  Sex: Female

DRUGS (1)
  1. TYSABRI [Suspect]
     Indication: MULTIPLE SCLEROSIS
     Route: 042
     Dates: start: 20070910, end: 20100714

REACTIONS (13)
  - BALANCE DISORDER [None]
  - BLINDNESS [None]
  - CONTUSION [None]
  - DRUG INEFFECTIVE [None]
  - DYSGRAPHIA [None]
  - EXCORIATION [None]
  - FALL [None]
  - GENERAL SYMPTOM [None]
  - LOSS OF CONTROL OF LEGS [None]
  - MEMORY IMPAIRMENT [None]
  - MULTIPLE SCLEROSIS [None]
  - ROAD TRAFFIC ACCIDENT [None]
  - TREMOR [None]
